FAERS Safety Report 8708209 (Version 3)
Quarter: 2013Q1

REPORT INFORMATION
  Report Type: Spontaneous
  Country: BR (occurrence: BR)
  Receive Date: 20120806
  Receipt Date: 20130123
  Transmission Date: 20140127
  Serious: Yes (Other)
  Sender: FDA-Public Use
  Company Number: PHHY2012BR066522

PATIENT
  Age: 63 Year
  Sex: Female

DRUGS (3)
  1. ESTALIS [Suspect]
     Indication: HORMONE REPLACEMENT THERAPY
     Dosage: 1 DF, Q96H
     Route: 062
  2. ESTALIS [Suspect]
     Dosage: UNK UKN, UNK
     Route: 062
     Dates: start: 20120727
  3. SYSTEN CONTI [Suspect]

REACTIONS (3)
  - Haemorrhage [Unknown]
  - Product adhesion issue [Unknown]
  - Drug intolerance [Unknown]
